FAERS Safety Report 9637539 (Version 1)
Quarter: 2013Q4

REPORT INFORMATION
  Report Type: Report from Study
  Country: CA (occurrence: CA)
  Receive Date: 20131022
  Receipt Date: 20131022
  Transmission Date: 20140711
  Serious: Yes (Other)
  Sender: FDA-Public Use
  Company Number: CA-JNJFOC-20131009961

PATIENT
  Age: 72 Year
  Sex: Female
  Weight: 116.4 kg

DRUGS (16)
  1. REMICADE [Suspect]
     Indication: CROHN^S DISEASE
     Route: 042
  2. REMICADE [Suspect]
     Indication: CROHN^S DISEASE
     Route: 042
     Dates: start: 20130522
  3. METOPROLOL [Concomitant]
     Route: 048
  4. EZETROL [Concomitant]
     Route: 048
  5. NEXIUM [Concomitant]
     Route: 048
  6. HUMALOG [Concomitant]
     Dosage: 24-20-24
     Route: 058
  7. LANTUS SOLOSTAR [Concomitant]
     Dosage: 24-20-24
     Route: 048
  8. VITAMIN B12 [Concomitant]
     Dosage: 24-20-24
     Route: 048
  9. CENTRUM A-Z [Concomitant]
     Dosage: 24-20-24
     Route: 048
  10. VITAMIN D [Concomitant]
     Dosage: 24-20-24
     Route: 048
  11. ARTHROTEC [Concomitant]
     Dosage: 24-20-24
     Route: 048
  12. RAMIPRIL [Concomitant]
     Dosage: 24-20-24
     Route: 048
  13. APO-HYDRO [Concomitant]
     Dosage: 24-20-24
     Route: 048
  14. PRADAXA [Concomitant]
     Dosage: 24-20-24
     Route: 048
  15. VITA-LUX [Concomitant]
     Dosage: 24-20-24
     Route: 048
  16. GLYCERYL TRINITRATE [Concomitant]
     Route: 065

REACTIONS (1)
  - Erythema nodosum [Unknown]
